FAERS Safety Report 7363427-4 (Version None)
Quarter: 2011Q1

REPORT INFORMATION
  Report Type: 
  Country: None (occurrence: None)
  Receive Date: 20110321
  Receipt Date: 20110308
  Transmission Date: 20110831
  Serious: Yes (Hospitalization)
  Sender: FDA-Public Use
  Company Number: US-JNJFOC-20090903035

PATIENT
  Sex: Male
  Weight: 48.3 kg

DRUGS (2)
  1. REMICADE [Suspect]
     Indication: COLITIS ULCERATIVE
     Dosage: TOTAL 10 DOSES
     Route: 042
     Dates: start: 20071205, end: 20081209
  2. REMICADE [Suspect]
     Route: 042
     Dates: start: 20071205, end: 20081209

REACTIONS (1)
  - ILEOSTOMY CLOSURE [None]
